FAERS Safety Report 8805299 (Version 1)
Quarter: 2012Q4

REPORT INFORMATION
  Report Type: 
  Country: LK (occurrence: LK)
  Receive Date: 20120924
  Receipt Date: 20120924
  Transmission Date: 20130627
  Serious: Yes (Death, Hospitalization, Other)
  Sender: FDA-Public Use
  Company Number: PHHY2009LK071018

PATIENT

DRUGS (1)
  1. GLIVEC [Suspect]
     Indication: CHRONIC MYELOID LEUKAEMIA
     Dates: start: 20060921

REACTIONS (6)
  - Cerebral haemorrhage [Fatal]
  - Pallor [Unknown]
  - Haemoptysis [Unknown]
  - Loss of consciousness [Unknown]
  - Pyrexia [Unknown]
  - Blast crisis in myelogenous leukaemia [Unknown]
